FAERS Safety Report 21249044 (Version 1)
Quarter: 2022Q3

REPORT INFORMATION
  Report Type: Spontaneous
  Country: US (occurrence: US)
  Receive Date: 20220824
  Receipt Date: 20220824
  Transmission Date: 20221027
  Serious: No
  Sender: FDA-Public Use
  Company Number: US-BAYER-2022A117537

PATIENT
  Sex: Male

DRUGS (1)
  1. ASTEPRO [Suspect]
     Active Substance: AZELASTINE HYDROCHLORIDE
     Dosage: NOT AVAILABLE
     Route: 045
     Dates: start: 20220820

REACTIONS (1)
  - Sneezing [Recovered/Resolved]

NARRATIVE: CASE EVENT DATE: 20220820
